FAERS Safety Report 19964197 (Version 1)
Quarter: 2021Q4

REPORT INFORMATION
  Report Type: Spontaneous
  Country: US (occurrence: US)
  Receive Date: 20211014
  Receipt Date: 20211014
  Transmission Date: 20220303
  Serious: No
  Sender: FDA-Public Use
  Company Number: None

PATIENT
  Age: 51 Year
  Sex: Female

DRUGS (1)
  1. COSENTYX [Suspect]
     Active Substance: SECUKINUMAB
     Indication: Psoriatic arthropathy
     Dosage: ?          OTHER DOSE:150MG (1 PEN) ;????OTHER FREQUENCY : UD
     Route: 058
     Dates: start: 202107

REACTIONS (1)
  - Urinary tract infection [None]
